FAERS Safety Report 6801925-X (Version None)
Quarter: 2010Q2

REPORT INFORMATION
  Report Type: 
  Country: None (occurrence: None)
  Receive Date: 20100629
  Receipt Date: 20100618
  Transmission Date: 20101027
  Serious: Yes (Death)
  Sender: FDA-Public Use
  Company Number: US-MYLANLABS-2010S1011190

PATIENT
  Sex: Female

DRUGS (2)
  1. CLARAVIS [Suspect]
     Dates: start: 20100301
  2. AMNESTEEM [Suspect]
     Dates: start: 20100401

REACTIONS (1)
  - DEATH [None]
